FAERS Safety Report 7223441-6 (Version None)
Quarter: 2011Q1

REPORT INFORMATION
  Report Type: 
  Country: None (occurrence: None)
  Receive Date: 20110112
  Receipt Date: 20100622
  Transmission Date: 20110831
  Serious: No
  Sender: FDA-Public Use
  Company Number: US-ALLERGAN-1008171US

PATIENT
  Age: 34 Year
  Sex: Female

DRUGS (4)
  1. KLONOPIN [Concomitant]
     Indication: ANXIETY
  2. RESTASIS [Suspect]
     Indication: DRY EYE
     Dosage: 1 GTT, QD
     Route: 047
     Dates: start: 20100401
  3. LEXAPRO [Concomitant]
     Indication: ANXIETY
  4. LOTEMAX [Concomitant]

REACTIONS (1)
  - EYE IRRITATION [None]
